FAERS Safety Report 20110606 (Version 1)
Quarter: 2021Q4

REPORT INFORMATION
  Report Type: Report from Study
  Country: FR (occurrence: FR)
  Receive Date: 20211124
  Receipt Date: 20211124
  Transmission Date: 20220303
  Serious: Yes (Hospitalization)
  Sender: FDA-Public Use
  Company Number: FR-SERVIER-S21012974

PATIENT

DRUGS (5)
  1. PEGASPARGASE [Suspect]
     Active Substance: PEGASPARGASE
     Indication: Acute lymphocytic leukaemia
     Dosage: 1313 IU, D12
     Route: 042
     Dates: start: 20211025, end: 20211025
  2. TN UNSPECIFIED [Concomitant]
     Indication: Acute lymphocytic leukaemia
     Dosage: 60 MG, UNKNOWN
     Route: 042
     Dates: start: 20211025
  3. TN UNSPECIFIED [Concomitant]
     Indication: Acute lymphocytic leukaemia
     Dosage: 15 MG, D13
     Route: 037
     Dates: start: 20211026, end: 20211026
  4. TN UNSPECIFIED [Concomitant]
     Indication: Acute lymphocytic leukaemia
     Dosage: 15 MG, D13
     Route: 037
     Dates: start: 20211026, end: 20211026
  5. TN UNSPECIFIED [Concomitant]
     Indication: Acute lymphocytic leukaemia
     Dosage: 30 MG, D13
     Route: 037
     Dates: start: 20211026, end: 20211026

REACTIONS (1)
  - Escherichia sepsis [Not Recovered/Not Resolved]

NARRATIVE: CASE EVENT DATE: 20211027
